FAERS Safety Report 17283003 (Version 1)
Quarter: 2020Q1

REPORT INFORMATION
  Report Type: Spontaneous
  Country: FR (occurrence: FR)
  Receive Date: 20200117
  Receipt Date: 20200117
  Transmission Date: 20200409
  Serious: Yes (Life-Threatening, Hospitalization)
  Sender: FDA-Public Use
  Company Number: FR-ASTRAZENECA-2019SF54339

PATIENT
  Age: 4 Year
  Sex: Male
  Weight: 21 kg

DRUGS (10)
  1. BUDESONIDE. [Suspect]
     Active Substance: BUDESONIDE
     Indication: PRODUCT USED FOR UNKNOWN INDICATION
     Route: 055
  2. SODIUM NEDOCROMIL [Suspect]
     Active Substance: NEDOCROMIL SODIUM
     Indication: ASTHMA
     Route: 065
  3. MEQUITAZINE [Suspect]
     Active Substance: MEQUITAZINE
     Indication: ASTHMA
     Route: 065
  4. ZADITEN [Suspect]
     Active Substance: KETOTIFEN FUMARATE
     Indication: PRODUCT USED FOR UNKNOWN INDICATION
     Route: 065
  5. ACETYLCYSTEINE. [Suspect]
     Active Substance: ACETYLCYSTEINE
     Indication: ASTHMA
     Route: 065
  6. RIBOMUNYL [BACTERIAL RIBOSOME FRACTION\KLEBSIELLA PNEUMONIAE] [Suspect]
     Active Substance: RIBONUCLEIC ACID
     Indication: ASTHMA
     Route: 065
  7. THEOSTAT [Suspect]
     Active Substance: THEOPHYLLINE ANHYDROUS
     Indication: ASTHMA
     Route: 048
  8. EUPHYLLINE (THEOPHYLLINE) [Suspect]
     Active Substance: THEOPHYLLINE ANHYDROUS
     Indication: ASTHMA
     Route: 048
  9. CROMOGLICATE SODIUM [Suspect]
     Active Substance: CROMOLYN SODIUM
     Indication: PRODUCT USED FOR UNKNOWN INDICATION
     Route: 065
  10. FENSPIRIDE [Suspect]
     Active Substance: FENSPIRIDE
     Indication: ASTHMA
     Route: 065

REACTIONS (8)
  - Sinus tachycardia [Recovered/Resolved]
  - Product prescribing error [Recovered/Resolved]
  - Blood pressure increased [Recovered/Resolved]
  - Urinary retention [Recovered/Resolved]
  - Pyramidal tract syndrome [Recovered/Resolved]
  - Toxicity to various agents [Recovered/Resolved]
  - Status epilepticus [Recovered/Resolved]
  - Vomiting projectile [Recovered/Resolved]
